FAERS Safety Report 13677177 (Version 3)
Quarter: 2017Q2

REPORT INFORMATION
  Report Type: Spontaneous
  Country: JP (occurrence: JP)
  Receive Date: 20170622
  Receipt Date: 20170628
  Transmission Date: 20170830
  Serious: Yes (Hospitalization)
  Sender: FDA-Public Use
  Company Number: JP-EISAI MEDICAL RESEARCH-EC-2017-028612

PATIENT
  Age: 46 Year
  Sex: Female

DRUGS (1)
  1. RABEFINE [Suspect]
     Active Substance: AMOXICILLIN\METRONIDAZOLE\RABEPRAZOLE
     Indication: INFECTION
     Route: 048
     Dates: start: 20170613, end: 20170614

REACTIONS (1)
  - Ileus [Unknown]

NARRATIVE: CASE EVENT DATE: 20170615
